FAERS Safety Report 24807849 (Version 3)
Quarter: 2025Q4

REPORT INFORMATION
  Report Type: Report from Study
  Country: US (occurrence: US)
  Receive Date: 20250106
  Receipt Date: 20251224
  Transmission Date: 20260119
  Serious: Yes (Death, Other)
  Sender: JOHNSON AND JOHNSON
  Company Number: US-JNJFOC-20241273989

PATIENT
  Age: 73 Year
  Sex: Female

DRUGS (2)
  1. CARVYKTI [Suspect]
     Active Substance: CILTACABTAGENE AUTOLEUCEL
     Indication: Plasma cell myeloma
     Dosage: TOTAL NUMBER OF CELLS ADMINISTERED: 37.2; TOTAL CELLS EXPONENT VALUE: 6
     Route: 042
  2. CARVYKTI [Suspect]
     Active Substance: CILTACABTAGENE AUTOLEUCEL
     Indication: Plasma cell disorder

REACTIONS (2)
  - Neoplasm malignant [Fatal]
  - Breast cancer [Unknown]
